FAERS Safety Report 19024351 (Version 1)
Quarter: 2021Q1

REPORT INFORMATION
  Report Type: Other
  Country: US (occurrence: US)
  Receive Date: 20210318
  Receipt Date: 20210318
  Transmission Date: 20210420
  Serious: Yes (Disabling)
  Sender: FDA-Public Use
  Company Number: US-ROCHE-2749686

PATIENT
  Sex: Female

DRUGS (17)
  1. PREDNISONE. [Concomitant]
     Active Substance: PREDNISONE
     Route: 048
  2. METOPROLOL SUCCINATE ER [Concomitant]
     Active Substance: METOPROLOL SUCCINATE
     Route: 048
  3. PHILLIPS COLON HEALTH [Concomitant]
     Route: 048
  4. CALCIUM [Concomitant]
     Active Substance: CALCIUM
     Route: 048
  5. ACTEMRA [Suspect]
     Active Substance: TOCILIZUMAB
  6. LEFLUNOMIDE. [Concomitant]
     Active Substance: LEFLUNOMIDE
     Route: 048
  7. SPIRONOLACTONE. [Concomitant]
     Active Substance: SPIRONOLACTONE
     Route: 048
  8. GARLIC. [Concomitant]
     Active Substance: GARLIC
     Route: 048
  9. ACTEMRA [Suspect]
     Active Substance: TOCILIZUMAB
  10. BONIVA [Suspect]
     Active Substance: IBANDRONATE SODIUM
     Indication: GIANT CELL ARTERITIS
     Route: 048
  11. LISINOPRIL. [Concomitant]
     Active Substance: LISINOPRIL
     Route: 048
  12. PREDNISONE. [Concomitant]
     Active Substance: PREDNISONE
     Route: 048
  13. ACTEMRA [Suspect]
     Active Substance: TOCILIZUMAB
     Indication: AUTOIMMUNE DISORDER
  14. FOLIC ACID. [Concomitant]
     Active Substance: FOLIC ACID
     Route: 048
  15. ACTEMRA [Suspect]
     Active Substance: TOCILIZUMAB
     Indication: GIANT CELL ARTERITIS
     Route: 058
  16. AMLODIPINE [Concomitant]
     Active Substance: AMLODIPINE BESYLATE
     Route: 048
  17. SUPER B?50 [Concomitant]
     Route: 048

REACTIONS (4)
  - Blindness unilateral [Unknown]
  - Illness [Unknown]
  - COVID-19 [Unknown]
  - Diarrhoea [Unknown]
